FAERS Safety Report 25567898 (Version 2)
Quarter: 2025Q4

REPORT INFORMATION
  Report Type: Spontaneous
  Country: CA (occurrence: CA)
  Receive Date: 20250716
  Receipt Date: 20251125
  Transmission Date: 20260118
  Serious: Yes (Other)
  Sender: ASTELLAS
  Company Number: CA-ASTELLAS-2025-AER-037702

PATIENT
  Age: 74 Year
  Sex: Male

DRUGS (17)
  1. XTANDI [Suspect]
     Active Substance: ENZALUTAMIDE
     Indication: Product used for unknown indication
     Route: 048
  2. GOSERELIN [Suspect]
     Active Substance: GOSERELIN
     Indication: Prostate cancer
     Dosage: 1 EVERY 12 WEEKS
     Route: 058
     Dates: start: 20250220
  3. GOSERELIN [Suspect]
     Active Substance: GOSERELIN
     Dosage: 1 EVERY 12 WEEKS
     Route: 058
     Dates: start: 20250515
  4. GOSERELIN [Suspect]
     Active Substance: GOSERELIN
     Dosage: 1 EVERY 12 WEEKS
     Route: 058
     Dates: start: 20241128
  5. GOSERELIN [Suspect]
     Active Substance: GOSERELIN
     Dosage: 1 EVERY 12 WEEKS
     Route: 058
     Dates: start: 20240322
  6. GOSERELIN [Suspect]
     Active Substance: GOSERELIN
     Route: 058
  7. GOSERELIN [Suspect]
     Active Substance: GOSERELIN
     Route: 058
  8. GOSERELIN [Suspect]
     Active Substance: GOSERELIN
     Indication: Prostate cancer
     Dosage: PRE-FILLED SYRINGE
     Route: 065
  9. CABAZITAXEL [Suspect]
     Active Substance: CABAZITAXEL
     Indication: Product used for unknown indication
     Route: 065
  10. DOCETAXEL [Suspect]
     Active Substance: DOCETAXEL
     Indication: Product used for unknown indication
     Dosage: DOSAGE NOT SPECIFIED
     Route: 065
  11. ALLOPURINOL [Concomitant]
     Active Substance: ALLOPURINOL
     Indication: Product used for unknown indication
     Dosage: TABLETS
     Route: 065
  12. RAMIPRIL [Concomitant]
     Active Substance: RAMIPRIL
     Indication: Product used for unknown indication
     Dosage: DOSAGE NOT SPECIFIED
     Route: 065
  13. NIFEDIPINE [Concomitant]
     Active Substance: NIFEDIPINE
     Indication: Product used for unknown indication
     Dosage: DOSAGE NOT SPECIFIED
     Route: 065
  14. SYNTHROID [Concomitant]
     Active Substance: LEVOTHYROXINE SODIUM
     Indication: Product used for unknown indication
     Dosage: DOSAGE NOT SPECIFIED
     Route: 065
  15. CALCIUM [Concomitant]
     Active Substance: CALCIUM
     Indication: Product used for unknown indication
     Dosage: DOSAGE NOT SPECIFIED
     Route: 065
  16. CHOLECALCIFEROL [Concomitant]
     Active Substance: CHOLECALCIFEROL
     Indication: Product used for unknown indication
     Route: 065
  17. ERGOCALCIFEROL [Concomitant]
     Active Substance: ERGOCALCIFEROL
     Indication: Product used for unknown indication
     Route: 065

REACTIONS (4)
  - Malignant neoplasm progression [Unknown]
  - Prostatic specific antigen increased [Unknown]
  - Gait disturbance [Unknown]
  - Sciatica [Unknown]
